FAERS Safety Report 21696075 (Version 1)
Quarter: 2022Q4

REPORT INFORMATION
  Report Type: Spontaneous
  Country: CA (occurrence: CA)
  Receive Date: 20221207
  Receipt Date: 20221207
  Transmission Date: 20230113
  Serious: Yes (Other)
  Sender: FDA-Public Use
  Company Number: CA-JNJFOC-20221201099

PATIENT
  Age: 34 Year
  Sex: Female

DRUGS (2)
  1. TOPAMAX [Suspect]
     Active Substance: TOPIRAMATE
     Indication: Migraine prophylaxis
     Route: 048
  2. UNSPECIFIED INGREDIENT [Concomitant]
     Active Substance: UNSPECIFIED INGREDIENT

REACTIONS (9)
  - Mental impairment [Unknown]
  - Aphasia [Unknown]
  - Dysarthria [Unknown]
  - Feeling abnormal [Unknown]
  - Cognitive disorder [Unknown]
  - Epistaxis [Unknown]
  - Hypoaesthesia [Unknown]
  - Memory impairment [Unknown]
  - Paraesthesia [Unknown]
